FAERS Safety Report 6987152-4 (Version None)
Quarter: 2010Q3

REPORT INFORMATION
  Report Type: 
  Country: None (occurrence: None)
  Receive Date: 20100916
  Receipt Date: 20100910
  Transmission Date: 20110219
  Serious: Yes (Other)
  Sender: FDA-Public Use
  Company Number: US-PFIZER INC-2008092745

PATIENT
  Sex: Male
  Weight: 97 kg

DRUGS (6)
  1. CAVERJECT [Interacting]
     Indication: ERECTILE DYSFUNCTION
     Dosage: 20 UG, UNK
     Dates: start: 20080101
  2. CAVERJECT [Interacting]
     Dosage: 40 UG, AS NEEDED
  3. HYDROCHLOROTHIAZIDE [Interacting]
     Indication: BLOOD PRESSURE ABNORMAL
     Dosage: UNK
     Route: 048
     Dates: start: 20100301
  4. AMOXICILLIN [Interacting]
     Indication: SINUSITIS
     Dosage: UNK
     Dates: start: 20100406
  5. COSOPT [Suspect]
     Dosage: UNK
  6. PRED FORTE [Concomitant]
     Dosage: UNK

REACTIONS (11)
  - BLOOD PRESSURE ABNORMAL [None]
  - DIZZINESS [None]
  - DRUG EFFECT DECREASED [None]
  - DRUG INEFFECTIVE [None]
  - DRUG INTERACTION [None]
  - INCORRECT DOSE ADMINISTERED [None]
  - PARAESTHESIA OF GENITAL MALE [None]
  - PENILE PAIN [None]
  - PENIS DEVIATION [None]
  - SINUSITIS [None]
  - TESTICULAR PAIN [None]
